FAERS Safety Report 10046016 (Version 2)
Quarter: 2014Q1

REPORT INFORMATION
  Report Type: Spontaneous
  Country: US (occurrence: US)
  Receive Date: 20140330
  Receipt Date: 20140330
  Transmission Date: 20141002
  Serious: Yes (Other)
  Sender: FDA-Public Use
  Company Number: US-GE HEALTHCARE MEDICAL DIAGNOSTICS-OSCN-PR-0805S-0281

PATIENT
  Sex: Female

DRUGS (10)
  1. OMNISCAN [Suspect]
     Indication: HEADACHE
     Route: 042
     Dates: start: 20000323, end: 20000323
  2. OMNISCAN [Suspect]
     Indication: HAEMATOMA
     Route: 042
     Dates: start: 20020115, end: 20020115
  3. OMNISCAN [Suspect]
     Indication: RENAL ARTERY STENOSIS
     Route: 042
     Dates: start: 20050531, end: 20050531
  4. OMNISCAN [Suspect]
     Dates: start: 20050601, end: 20050601
  5. OMNISCAN [Suspect]
     Dates: start: 20050815, end: 20050815
  6. OMNISCAN [Suspect]
     Dates: start: 20051007, end: 20051007
  7. OMNISCAN [Suspect]
     Dates: start: 20051102, end: 20051102
  8. OMNISCAN [Suspect]
     Dates: start: 20051214, end: 20051214
  9. OMNISCAN [Suspect]
     Dates: start: 20061113, end: 20061113
  10. OMNISCAN [Suspect]
     Dates: start: 20070404, end: 20070404

REACTIONS (1)
  - Nephrogenic systemic fibrosis [Not Recovered/Not Resolved]
